FAERS Safety Report 15884897 (Version 1)
Quarter: 2019Q1

REPORT INFORMATION
  Report Type: Spontaneous
  Country: US (occurrence: US)
  Receive Date: 20190108
  Receipt Date: 20190108
  Transmission Date: 20190417
  Serious: No
  Sender: FDA-Public Use
  Company Number: None

PATIENT
  Age: 59 Year
  Sex: Female

DRUGS (1)
  1. COPAXONE [Suspect]
     Active Substance: GLATIRAMER ACETATE
     Route: 048
     Dates: start: 201801

REACTIONS (2)
  - Product dose omission [None]
  - Asthenia [None]

NARRATIVE: CASE EVENT DATE: 20190107
